FAERS Safety Report 13058951 (Version 2)
Quarter: 2017Q1

REPORT INFORMATION
  Report Type: Spontaneous
  Country: IT (occurrence: IT)
  Receive Date: 20161223
  Receipt Date: 20170112
  Transmission Date: 20170428
  Serious: Yes (Hospitalization)
  Sender: FDA-Public Use
  Company Number: PHHY2016IT174127

PATIENT
  Age: 78 Year
  Sex: Female
  Weight: 55 kg

DRUGS (7)
  1. EFEXOR [Concomitant]
     Active Substance: VENLAFAXINE HYDROCHLORIDE
     Indication: DEPRESSION
     Dosage: 300 MG, UNK
     Route: 048
     Dates: end: 20161119
  2. GLICLAZIDE [Concomitant]
     Active Substance: GLICLAZIDE
     Indication: TYPE 2 DIABETES MELLITUS
     Route: 048
     Dates: end: 20161119
  3. ACETYLSALICYLIC ACID [Suspect]
     Active Substance: ASPIRIN
     Indication: CARDIAC VALVE DISEASE
     Dosage: 100 MG, QD
     Route: 048
     Dates: end: 20161119
  4. METFORMIN [Concomitant]
     Active Substance: METFORMIN HYDROCHLORIDE
     Indication: TYPE 2 DIABETES MELLITUS
     Dosage: 1000 MG, UNK
     Route: 048
     Dates: end: 20161119
  5. LACIPIL [Concomitant]
     Active Substance: LACIDIPINE
     Indication: TYPE 2 DIABETES MELLITUS
     Dosage: 4 MG, UNK
     Route: 048
     Dates: end: 20161119
  6. ARCOXIA [Interacting]
     Active Substance: ETORICOXIB
     Indication: OSTEOARTHRITIS
     Dosage: 60 MG, QD
     Route: 048
     Dates: end: 20161119
  7. INSULIN [Concomitant]
     Active Substance: INSULIN NOS
     Indication: DIABETES MELLITUS
     Route: 058

REACTIONS (4)
  - Drug interaction [Recovered/Resolved]
  - Hypertensive crisis [Recovered/Resolved]
  - Gastric ulcer [Recovered/Resolved]
  - Acute pulmonary oedema [Recovered/Resolved]

NARRATIVE: CASE EVENT DATE: 20161119
